FAERS Safety Report 6403012-1 (Version None)
Quarter: 2009Q4

REPORT INFORMATION
  Report Type: 
  Country: None (occurrence: None)
  Receive Date: 20091013
  Receipt Date: 20090928
  Transmission Date: 20100525
  Serious: Yes (Hospitalization)
  Sender: FDA-Public Use
  Company Number: 2009PV038709

PATIENT
  Age: 56 Year
  Sex: Female
  Weight: 74.8435 kg

DRUGS (13)
  1. SYMLIN [Suspect]
     Indication: TYPE 1 DIABETES MELLITUS
     Dosage: 15 MCG, 60 MCG, TID, SC
     Route: 058
     Dates: start: 20090301, end: 20090301
  2. SYMLIN [Suspect]
     Indication: TYPE 1 DIABETES MELLITUS
     Dosage: 15 MCG, 60 MCG, TID, SC
     Route: 058
     Dates: start: 20090301, end: 20090301
  3. SYMLIN [Suspect]
     Indication: TYPE 1 DIABETES MELLITUS
     Dosage: 15 MCG, 60 MCG, TID, SC
     Route: 058
     Dates: start: 20090301, end: 20090701
  4. SYMLIN [Suspect]
     Indication: TYPE 1 DIABETES MELLITUS
     Dosage: 15 MCG, 60 MCG, TID, SC
     Route: 058
     Dates: start: 20090901
  5. HUMALOG [Concomitant]
  6. SYNTHROID [Concomitant]
  7. CLINORIL [Concomitant]
  8. ANTIGLAUCOMA [Concomitant]
  9. PREPARATIONS AND MIOTICS [Concomitant]
  10. LIPITOR [Concomitant]
  11. ACETAMINOPHEN [Concomitant]
  12. ESTROGEN NOS [Concomitant]
  13. PREV MEDS [Concomitant]

REACTIONS (2)
  - BACK PAIN [None]
  - NAUSEA [None]
